FAERS Safety Report 24981151 (Version 2)
Quarter: 2025Q1

REPORT INFORMATION
  Report Type: Spontaneous
  Country: DE (occurrence: CH)
  Receive Date: 20250218
  Receipt Date: 20250227
  Transmission Date: 20250408
  Serious: Yes (Hospitalization, Other)
  Sender: PFIZER
  Company Number: DE-ABBVIE-6119613

PATIENT
  Age: 19 Year
  Sex: Male

DRUGS (4)
  1. ADALIMUMAB [Suspect]
     Active Substance: ADALIMUMAB
     Indication: Crohn^s disease
     Route: 058
     Dates: start: 201702
  2. ADALIMUMAB [Suspect]
     Active Substance: ADALIMUMAB
     Route: 058
     Dates: start: 2022
  3. AZATHIOPRINE [Concomitant]
     Active Substance: AZATHIOPRINE
     Dates: start: 201609, end: 201804
  4. AZATHIOPRINE [Concomitant]
     Active Substance: AZATHIOPRINE
     Dates: start: 201809, end: 202001

REACTIONS (25)
  - Papilloedema [Unknown]
  - Headache [Unknown]
  - Transverse sinus thrombosis [Unknown]
  - Facial paralysis [Unknown]
  - Monoparesis [Unknown]
  - VIth nerve paralysis [Unknown]
  - Jugular vein thrombosis [Unknown]
  - Sigmoid sinus thrombosis [Unknown]
  - Pyoderma gangrenosum [Unknown]
  - Impaired healing [Unknown]
  - Sepsis [Not Recovered/Not Resolved]
  - Mastoiditis [Not Recovered/Not Resolved]
  - Crohn^s disease [Unknown]
  - Mastoidectomy [Unknown]
  - Trismus [Unknown]
  - Staphylococcal infection [Unknown]
  - Vision blurred [Unknown]
  - Pain [Unknown]
  - Skin exfoliation [Unknown]
  - Psoriasis [Unknown]
  - Inflammation [Unknown]
  - Eczema [Unknown]
  - Otitis media [Unknown]
  - Rash [Unknown]
  - Drug ineffective [Unknown]

NARRATIVE: CASE EVENT DATE: 20170101
